FAERS Safety Report 9611850 (Version 1)
Quarter: 2013Q4

REPORT INFORMATION
  Report Type: Spontaneous
  Country: US (occurrence: US)
  Receive Date: 20131010
  Receipt Date: 20131010
  Transmission Date: 20140711
  Serious: Yes (Death, Hospitalization, Other)
  Sender: FDA-Public Use
  Company Number: US-ROCHE-1287224

PATIENT
  Age: 56 Year
  Sex: Male

DRUGS (5)
  1. CELLCEPT [Suspect]
     Indication: PRODUCT USED FOR UNKNOWN INDICATION
     Route: 065
  2. H.P. ACTHAR GEL [Concomitant]
     Indication: FOCAL SEGMENTAL GLOMERULOSCLEROSIS
     Route: 065
     Dates: start: 201111
  3. TACROLIMUS [Concomitant]
  4. SIMVASTATIN [Concomitant]
  5. VANCOMYCIN [Concomitant]

REACTIONS (4)
  - Acute respiratory distress syndrome [Fatal]
  - Fungal infection [Unknown]
  - Pneumonia [Unknown]
  - Renal failure [Unknown]
